FAERS Safety Report 8887255 (Version 1)
Quarter: 2012Q4

REPORT INFORMATION
  Report Type: Report from Study
  Country: JP (occurrence: JP)
  Receive Date: 20121105
  Receipt Date: 20121105
  Transmission Date: 20130627
  Serious: Yes (Death, Hospitalization)
  Sender: FDA-Public Use
  Company Number: JP-CELGENEUS-087-50794-12092321

PATIENT
  Age: 68 Year
  Sex: Male
  Weight: 57 kg

DRUGS (20)
  1. ATENENTOIN [Concomitant]
     Indication: DRUG USE FOR UNKNOWN INDICATION
     Route: 065
     Dates: end: 20120913
  2. ESTAZOLAM [Concomitant]
     Indication: DRUG USE FOR UNKNOWN INDICATION
     Route: 065
     Dates: end: 20120913
  3. FUROSEMIDE [Concomitant]
     Indication: DRUG USE FOR UNKNOWN INDICATION
     Route: 065
     Dates: end: 20120913
  4. MECOBALAMIN [Concomitant]
     Indication: DRUG USE FOR UNKNOWN INDICATION
     Route: 065
     Dates: end: 20120913
  5. LIMARMONE [Concomitant]
     Indication: DRUG USE FOR UNKNOWN INDICATION
     Route: 065
     Dates: end: 20120913
  6. ROSEOL [Concomitant]
     Indication: DRUG USE FOR UNKNOWN INDICATION
     Route: 065
     Dates: end: 20120913
  7. TAKEPRON [Concomitant]
     Indication: DRUG USE FOR UNKNOWN INDICATION
     Route: 065
     Dates: end: 20120913
  8. DIFLUCAN [Concomitant]
     Indication: DRUG USE FOR UNKNOWN INDICATION
     Route: 065
     Dates: end: 20120913
  9. SPIRIVA HANDIHALER [Concomitant]
     Indication: DRUG USE FOR UNKNOWN INDICATION
     Route: 065
     Dates: end: 20120913
  10. BAKTAR [Concomitant]
     Indication: DRUG USE FOR UNKNOWN INDICATION
     Route: 065
     Dates: end: 20120823
  11. GLAKAY [Concomitant]
     Indication: DRUG USE FOR UNKNOWN INDICATION
     Route: 065
     Dates: end: 20120913
  12. ONEALFA [Concomitant]
     Indication: DRUG USE FOR UNKNOWN INDICATION
     Route: 065
     Dates: end: 20120913
  13. TRANSFUSION (RBC, PLATELETS) [Concomitant]
     Indication: DRUG USE FOR UNKNOWN INDICATION
     Route: 041
  14. KYTRIL [Concomitant]
     Indication: DRUG USE FOR UNKNOWN INDICATION
     Route: 065
     Dates: start: 20120820, end: 20120822
  15. KYTRIL [Concomitant]
     Route: 065
     Dates: start: 20120830, end: 20120902
  16. VIDAZA [Suspect]
     Indication: MYELODYSPLASTIC SYNDROME
     Dosage: 75 milligram/sq. meter
     Route: 041
     Dates: start: 20120820, end: 20120822
  17. VIDAZA [Suspect]
     Dosage: 75 milligram/sq. meter
     Route: 041
     Dates: start: 20120830, end: 20120902
  18. GENINAX [Suspect]
     Indication: DRUG USE FOR UNKNOWN INDICATION
     Route: 065
     Dates: start: 20120822, end: 20120823
  19. UNICON [Concomitant]
     Indication: DRUG USE FOR UNKNOWN INDICATION
     Route: 065
     Dates: end: 20120913
  20. BIO-THREE [Concomitant]
     Indication: DRUG USE FOR UNKNOWN INDICATION
     Route: 065
     Dates: end: 20120913

REACTIONS (4)
  - Sepsis [Fatal]
  - Infective exacerbation of chronic obstructive airways disease [Recovered/Resolved]
  - Infective exacerbation of chronic obstructive airways disease [Unknown]
  - Rash [Recovered/Resolved]
